FAERS Safety Report 13279482 (Version 4)
Quarter: 2018Q1

REPORT INFORMATION
  Report Type: Spontaneous
  Country: JP (occurrence: JP)
  Receive Date: 20170228
  Receipt Date: 20180205
  Transmission Date: 20180508
  Serious: Yes (Other)
  Sender: FDA-Public Use
  Company Number: JP-ROCHE-1899671

PATIENT
  Age: 56 Year
  Sex: Female

DRUGS (6)
  1. XOLAIR [Suspect]
     Active Substance: OMALIZUMAB
     Route: 058
     Dates: start: 20160706
  2. XOLAIR [Suspect]
     Active Substance: OMALIZUMAB
     Indication: ASTHMA
     Dosage: 150 MG,PER ADMINISTRATION
     Route: 058
     Dates: start: 20160511, end: 201608
  3. THEOPHYLLINE [Concomitant]
     Active Substance: THEOPHYLLINE ANHYDROUS
     Indication: ASPIRIN-EXACERBATED RESPIRATORY DISEASE
     Dosage: UNK
     Route: 065
  4. SALBUTAMOL [Concomitant]
     Active Substance: ALBUTEROL
     Indication: ASPIRIN-EXACERBATED RESPIRATORY DISEASE
     Dosage: UNK, PRN
     Route: 065
  5. BUDESONIDE/FORMOTEROL FUMARATE [Concomitant]
     Active Substance: BUDESONIDE\FORMOTEROL FUMARATE
     Indication: ASPIRIN-EXACERBATED RESPIRATORY DISEASE
     Dosage: UNK
     Route: 065
  6. MONTELUKAST [Concomitant]
     Active Substance: MONTELUKAST SODIUM
     Indication: ASPIRIN-EXACERBATED RESPIRATORY DISEASE
     Dosage: UNK
     Route: 065

REACTIONS (1)
  - Sarcoidosis [Recovering/Resolving]

NARRATIVE: CASE EVENT DATE: 201607
